FAERS Safety Report 6937373-1 (Version None)
Quarter: 2010Q3

REPORT INFORMATION
  Report Type: 
  Country: None (occurrence: None)
  Receive Date: 20100823
  Receipt Date: 20100816
  Transmission Date: 20110219
  Serious: Yes (Other)
  Sender: FDA-Public Use
  Company Number: CHPA2010US13324

PATIENT
  Age: 30 Year
  Sex: Female

DRUGS (2)
  1. BENEFIBER W/ WHEAT DEXTRIN (NCH) [Suspect]
     Indication: BOWEL MOVEMENT IRREGULARITY
     Dosage: 2 TSP, QD
     Route: 048
     Dates: start: 20100801, end: 20100816
  2. BENEFIBER STICK PACKS [Suspect]
     Indication: BOWEL MOVEMENT IRREGULARITY
     Dosage: 1 DF, QD
     Route: 048
     Dates: start: 20100801, end: 20100816

REACTIONS (2)
  - DRUG INEFFECTIVE FOR UNAPPROVED INDICATION [None]
  - GASTRIC HAEMORRHAGE [None]
